FAERS Safety Report 25861970 (Version 1)
Quarter: 2025Q3

REPORT INFORMATION
  Report Type: Spontaneous
  Country: US (occurrence: US)
  Receive Date: 20250930
  Receipt Date: 20250930
  Transmission Date: 20251021
  Serious: No
  Sender: ROCHE
  Company Number: US-ROCHE-10000392821

PATIENT
  Sex: Male

DRUGS (2)
  1. RITUXAN [Suspect]
     Active Substance: RITUXIMAB
     Indication: Encephalitis
     Route: 042
     Dates: start: 202507
  2. RITUXAN [Suspect]
     Active Substance: RITUXIMAB
     Indication: Encephalomyelitis

REACTIONS (2)
  - Vein discolouration [Recovered/Resolved]
  - Off label use [Unknown]
